FAERS Safety Report 4431930-2 (Version None)
Quarter: 2004Q3

REPORT INFORMATION
  Report Type: 
  Country: None (occurrence: None)
  Receive Date: 20040818
  Receipt Date: 20040810
  Transmission Date: 20050211
  Serious: Yes (Hospitalization)
  Sender: FDA-Public Use
  Company Number: US_0407104440

PATIENT
  Age: 53 Year
  Sex: Male
  Weight: 104 kg

DRUGS (7)
  1. HUMATROPE [Suspect]
     Indication: GROWTH HORMONE DEFICIENCY
     Dosage: 0.4 MG/1 DAY
     Dates: start: 19980814, end: 20020620
  2. OXYBUTYNIN CHLORIDE [Concomitant]
  3. LANSOPRAZOLE [Concomitant]
  4. FOLIC ACID [Concomitant]
  5. MULTI-VITAMIN [Concomitant]
  6. TESTODERM [Concomitant]
  7. VICODIN [Concomitant]

REACTIONS (12)
  - ACTIVITIES OF DAILY LIVING IMPAIRED [None]
  - CONDITION AGGRAVATED [None]
  - EFFUSION [None]
  - HOMANS' SIGN [None]
  - INADEQUATE ANALGESIA [None]
  - JOINT CREPITATION [None]
  - JOINT RANGE OF MOTION DECREASED [None]
  - KNEE DEFORMITY [None]
  - LOCALISED OSTEOARTHRITIS [None]
  - THERAPY NON-RESPONDER [None]
  - VARICOSE VEIN [None]
  - VENOUS STASIS [None]
